FAERS Safety Report 9612613 (Version 2)
Quarter: 2013Q4

REPORT INFORMATION
  Report Type: Spontaneous
  Country: BR (occurrence: BR)
  Receive Date: 20131010
  Receipt Date: 20131010
  Transmission Date: 20140711
  Serious: Yes (Death, Other)
  Sender: FDA-Public Use
  Company Number: BR-PFIZER INC-2013251874

PATIENT
  Age: 24 Year
  Sex: Female
  Weight: 66 kg

DRUGS (4)
  1. SUTENT [Suspect]
     Indication: RENAL CELL CARCINOMA
     Dosage: 50 MG, 1X/DAY (CYCLE 2X1)
     Route: 048
     Dates: start: 20130816
  2. DRAMIN [Concomitant]
  3. DIPYRONE [Concomitant]
     Dosage: UNK
  4. PACO [Concomitant]
     Dosage: UNK

REACTIONS (8)
  - Death [Fatal]
  - Pneumonia [Unknown]
  - Pain [Unknown]
  - Diarrhoea [Unknown]
  - Nausea [Unknown]
  - Vomiting [Unknown]
  - Pain [Unknown]
  - Asthenia [Unknown]
